FAERS Safety Report 4326384-0 (Version None)
Quarter: 2004Q1

REPORT INFORMATION
  Report Type: 
  Country: None (occurrence: None)
  Receive Date: 20040329
  Receipt Date: 20040329
  Transmission Date: 20041129
  Serious: Yes (Other)
  Sender: FDA-Public Use
  Company Number: None

PATIENT
  Age: 73 Year
  Sex: Female

DRUGS (1)
  1. NIZATIDINE [Suspect]
     Dosage: BID
     Dates: start: 20030201, end: 20030301

REACTIONS (2)
  - NON-CARDIAC CHEST PAIN [None]
  - RASH ERYTHEMATOUS [None]
